FAERS Safety Report 10727013 (Version 1)
Quarter: 2015Q1

REPORT INFORMATION
  Report Type: Report from Study
  Country: JP (occurrence: JP)
  Receive Date: 20150121
  Receipt Date: 20150121
  Transmission Date: 20150721
  Serious: Yes (Death)
  Sender: FDA-Public Use
  Company Number: JP-SA-2015SA005257

PATIENT
  Age: 76 Year
  Sex: Male

DRUGS (3)
  1. CARBOPLATIN. [Suspect]
     Active Substance: CARBOPLATIN
     Indication: PROSTATE CANCER
     Dosage: AUC 6, EVERY 4 WEEK
     Route: 042
     Dates: start: 20070717, end: 20070910
  2. TAXOTERE [Suspect]
     Active Substance: DOCETAXEL
     Indication: PROSTATE CANCER
     Route: 042
     Dates: start: 20070717, end: 20070910
  3. ESTRAMUSTINE PHOSPHATE [Suspect]
     Active Substance: ESTRAMUSTINE PHOSPHATE
     Indication: PROSTATE CANCER
     Route: 048
     Dates: start: 20070717, end: 20070910

REACTIONS (3)
  - Respiratory failure [Fatal]
  - Interstitial lung disease [Fatal]
  - Chest X-ray abnormal [Fatal]

NARRATIVE: CASE EVENT DATE: 200710
